FAERS Safety Report 16161089 (Version 2)
Quarter: 2019Q2

REPORT INFORMATION
  Report Type: Spontaneous
  Country: GR (occurrence: GR)
  Receive Date: 20190405
  Receipt Date: 20190422
  Transmission Date: 20190711
  Serious: Yes (Hospitalization)
  Sender: FDA-Public Use
  Company Number: GR-ASTELLAS-2019US014199

PATIENT
  Age: 15 Year
  Sex: Male

DRUGS (1)
  1. MYCAMINE [Suspect]
     Active Substance: MICAFUNGIN SODIUM
     Indication: ANTIFUNGAL PROPHYLAXIS
     Route: 065

REACTIONS (3)
  - Candida infection [Recovering/Resolving]
  - Drug ineffective [Unknown]
  - Infection [Recovering/Resolving]
